FAERS Safety Report 13645515 (Version 1)
Quarter: 2017Q2

REPORT INFORMATION
  Report Type: Report from Study
  Country: BR (occurrence: BR)
  Receive Date: 20170613
  Receipt Date: 20170613
  Transmission Date: 20170830
  Serious: Yes (Other)
  Sender: FDA-Public Use
  Company Number: PHHY2017BR082942

PATIENT
  Sex: Female
  Weight: 67 kg

DRUGS (2)
  1. SANDOSTATIN LAR DEPOT [Suspect]
     Active Substance: OCTREOTIDE ACETATE
     Indication: HEPATIC NEOPLASM
     Dosage: 30 MG, QMO
     Route: 065
     Dates: start: 201612
  2. SANDOSTATIN LAR DEPOT [Suspect]
     Active Substance: OCTREOTIDE ACETATE
     Indication: NEUROENDOCRINE TUMOUR

REACTIONS (6)
  - Herpes virus infection [Unknown]
  - Jaw fracture [Unknown]
  - Tooth disorder [Unknown]
  - Upper limb fracture [Unknown]
  - Fall [Unknown]
  - Tooth loss [Unknown]
